FAERS Safety Report 25471985 (Version 1)
Quarter: 2025Q2

REPORT INFORMATION
  Report Type: Spontaneous
  Country: DE (occurrence: DE)
  Receive Date: 20250624
  Receipt Date: 20250624
  Transmission Date: 20250717
  Serious: Yes (Life-Threatening, Hospitalization)
  Sender: MERCK SHARP & DOHME LLC
  Company Number: DE-009507513-2298102

PATIENT
  Age: 29 Year
  Sex: Female

DRUGS (7)
  1. KEYTRUDA [Suspect]
     Active Substance: PEMBROLIZUMAB
     Indication: Triple negative breast cancer
     Dates: start: 20241018, end: 20241115
  2. EPIRUBICIN [Suspect]
     Active Substance: EPIRUBICIN
     Indication: Triple negative breast cancer
     Dosage: UNK, BIWEEKLY
     Dates: start: 20241018, end: 20241018
  3. EPIRUBICIN [Suspect]
     Active Substance: EPIRUBICIN
     Indication: Triple negative breast cancer
     Dosage: UNK, BIWEEKLY
     Dates: start: 20241101, end: 20241101
  4. EPIRUBICIN [Suspect]
     Active Substance: EPIRUBICIN
     Indication: Triple negative breast cancer
     Dosage: UNK, BIWEEKLY
     Dates: start: 20241115, end: 20241115
  5. EPIRUBICIN [Suspect]
     Active Substance: EPIRUBICIN
     Indication: Triple negative breast cancer
     Dosage: UNK, BIWEEKLY
     Dates: start: 20241018, end: 20241018
  6. EPIRUBICIN [Suspect]
     Active Substance: EPIRUBICIN
     Indication: Triple negative breast cancer
     Dosage: UNK, BIWEEKLY
     Dates: start: 20241101, end: 20241101
  7. EPIRUBICIN [Suspect]
     Active Substance: EPIRUBICIN
     Indication: Triple negative breast cancer
     Dosage: UNK, BIWEEKLY
     Dates: start: 20241115, end: 20241115

REACTIONS (15)
  - Pancytopenia [Recovered/Resolved]
  - Unresponsive to stimuli [Recovered/Resolved]
  - Pancreatitis [Recovered/Resolved]
  - Thyroiditis [Recovered/Resolved]
  - Inappropriate schedule of product administration [Unknown]
  - Pneumonia [Recovered/Resolved]
  - Hepatitis [Recovered/Resolved]
  - Encephalitis [Recovered/Resolved]
  - Multiple organ dysfunction syndrome [Recovered/Resolved]
  - Haemorrhage [Recovered/Resolved]
  - Thyrotoxic crisis [Recovered/Resolved]
  - Hypophysitis [Recovered/Resolved]
  - Type 1 diabetes mellitus [Recovered/Resolved]
  - Joint range of motion decreased [Not Recovered/Not Resolved]
  - Pneumonitis [Recovered/Resolved]

NARRATIVE: CASE EVENT DATE: 20241115
